FAERS Safety Report 11685855 (Version 3)
Quarter: 2016Q1

REPORT INFORMATION
  Report Type: Spontaneous
  Country: CN (occurrence: CN)
  Receive Date: 20151030
  Receipt Date: 20160106
  Transmission Date: 20160525
  Serious: Yes (Life-Threatening)
  Sender: FDA-Public Use
  Company Number: CN-NOVOPROD-468387

PATIENT
  Age: 59 Year
  Sex: Female
  Weight: 51 kg

DRUGS (2)
  1. NOVOMIX 30 PENFILL [Suspect]
     Active Substance: INSULIN ASPART
     Dosage: 24 U, QD(IN THE MORNING AND 12U IN THE EVENING)
     Route: 058
  2. NOVOMIX 30 PENFILL [Suspect]
     Active Substance: INSULIN ASPART
     Indication: TYPE 2 DIABETES MELLITUS
     Dosage: 24 U, QD(IN THE MORNING AND 12U IN THE EVENING)
     Route: 058
     Dates: start: 20151021, end: 20151021

REACTIONS (4)
  - Injection site hypersensitivity [Recovering/Resolving]
  - Hypersensitivity [Recovering/Resolving]
  - Product colour issue [Unknown]
  - Dermatitis allergic [Recovering/Resolving]

NARRATIVE: CASE EVENT DATE: 201510
